FAERS Safety Report 8299029-5 (Version None)
Quarter: 2012Q2

REPORT INFORMATION
  Report Type: 
  Country: None (occurrence: None)
  Receive Date: 20120419
  Receipt Date: 20120412
  Transmission Date: 20120825
  Serious: Yes (Other)
  Sender: FDA-Public Use
  Company Number: BR-PFIZER INC-2012091637

PATIENT
  Age: 59 Year
  Sex: Male

DRUGS (6)
  1. LEVOID [Concomitant]
     Indication: BLOOD THYROID STIMULATING HORMONE INCREASED
     Dosage: 1 TABLET DAILY
     Dates: start: 20120201
  2. DIOVAN [Concomitant]
     Indication: HYPERTENSION
     Dosage: 1 TABLET IN THE MORNING
     Dates: start: 20111001
  3. METFORMIN [Concomitant]
     Indication: DIABETES MELLITUS
     Dosage: UNK, ONCE DAILY
     Dates: start: 20090101
  4. ALDACTONE [Suspect]
     Indication: CARDIAC DISORDER
     Dosage: 25 MG, 1X/DAY
     Route: 048
     Dates: start: 20100101
  5. GALVUS MET [Concomitant]
     Indication: DIABETES MELLITUS
     Dosage: UNK
     Dates: start: 20090101
  6. AMILORIDE HYDROCHLORIDE/FUROSEMIDE [Concomitant]
     Indication: DIURETIC THERAPY
     Dosage: UNK, ONCE DAILY
     Dates: start: 20120301

REACTIONS (4)
  - BLOOD CHOLESTEROL INCREASED [None]
  - DECREASED APPETITE [None]
  - CARDIOMEGALY [None]
  - CARDIAC DISORDER [None]
